FAERS Safety Report 22181033 (Version 1)
Quarter: 2023Q2

REPORT INFORMATION
  Report Type: Spontaneous
  Country: JP (occurrence: None)
  Receive Date: 20230406
  Receipt Date: 20230406
  Transmission Date: 20230722
  Serious: Yes (Other)
  Sender: FDA-Public Use
  Company Number: 2023A076294

PATIENT
  Age: 82 Year
  Sex: Male

DRUGS (2)
  1. DAPAGLIFLOZIN [Suspect]
     Active Substance: DAPAGLIFLOZIN
     Indication: Type 2 diabetes mellitus
     Dosage: DOSE UNKNOWN
     Route: 048
  2. INSULIN DEGLUDEC(GENETICAL RECOMBINATION)/LIRAGLUTIDE(GENETICAL REC... [Concomitant]
     Indication: Type 2 diabetes mellitus
     Dosage: DOSE UNKNOWN

REACTIONS (2)
  - Hypoglycaemic encephalopathy [Recovering/Resolving]
  - Euglycaemic diabetic ketoacidosis [Unknown]
